FAERS Safety Report 6765551-3 (Version None)
Quarter: 2010Q2

REPORT INFORMATION
  Report Type: 
  Country: None (occurrence: None)
  Receive Date: 20100610
  Receipt Date: 20100610
  Transmission Date: 20101027
  Serious: No
  Sender: FDA-Public Use
  Company Number: None

PATIENT
  Age: 64 Year
  Sex: Female
  Weight: 81.6475 kg

DRUGS (1)
  1. PLAVIX [Suspect]
     Indication: ANEURYSM
     Dosage: 75 MG TWICE A DAY MOUTH
     Route: 048
     Dates: start: 20100401, end: 20100501

REACTIONS (1)
  - ARTHRALGIA [None]
